FAERS Safety Report 6211791-1 (Version None)
Quarter: 2009Q2

REPORT INFORMATION
  Report Type: 
  Country: None (occurrence: None)
  Receive Date: 20090528
  Receipt Date: 20090518
  Transmission Date: 20091009
  Serious: Yes (Other)
  Sender: FDA-Public Use
  Company Number: GXKR2009DE05264

PATIENT

DRUGS (4)
  1. HALOPERIDOL [Suspect]
     Dosage: VIA NOSE, INHALATION
     Route: 055
  2. SEROQUEL [Concomitant]
  3. BIPERIDEN HYDROCHLORIDE TAB [Concomitant]
  4. SEROQUEL XR (QUETIAPINE FUMARATE) [Concomitant]

REACTIONS (3)
  - DRUG ABUSE [None]
  - INCORRECT ROUTE OF DRUG ADMINISTRATION [None]
  - WRONG TECHNIQUE IN DRUG USAGE PROCESS [None]
